FAERS Safety Report 15834513 (Version 4)
Quarter: 2019Q3

REPORT INFORMATION
  Report Type: Report from Study
  Country: US (occurrence: US)
  Receive Date: 20190116
  Receipt Date: 20190726
  Transmission Date: 20191004
  Serious: Yes (Hospitalization, Other)
  Sender: FDA-Public Use
  Company Number: US-TAKEDA-2018TUS024667

PATIENT
  Sex: Female

DRUGS (1)
  1. PONATINIB [Suspect]
     Active Substance: PONATINIB
     Indication: ACUTE LYMPHOCYTIC LEUKAEMIA (IN REMISSION)
     Dosage: 15 MILLIGRAM, QD
     Route: 048
     Dates: start: 20180727

REACTIONS (7)
  - Joint swelling [Unknown]
  - Pain [Unknown]
  - Neoplasm progression [Unknown]
  - Dyspnoea [Unknown]
  - Hip fracture [Unknown]
  - Drug ineffective [Unknown]
  - Erythema [Unknown]
